FAERS Safety Report 8594144-0 (Version None)
Quarter: 2012Q3

REPORT INFORMATION
  Report Type: 
  Country: None (occurrence: None)
  Receive Date: 20120814
  Receipt Date: 20120806
  Transmission Date: 20120928
  Serious: Yes (Hospitalization)
  Sender: FDA-Public Use
  Company Number: MX-B.I. PHARMACEUTICALS,INC./RIDGEFIELD-2012-MX-00223MX

PATIENT
  Age: 79 Year
  Sex: Male
  Weight: 89 kg

DRUGS (6)
  1. PRADAXA [Suspect]
     Indication: ATRIAL FIBRILLATION
     Dosage: 220 MG
     Route: 048
     Dates: start: 20111001, end: 20111101
  2. PRADAXA [Suspect]
     Dosage: 150 MG
     Route: 048
     Dates: start: 20120101
  3. ADEPSIQUE [Concomitant]
     Indication: ANXIETY
     Dosage: ONE EVERY 24HRS
     Route: 048
     Dates: end: 20120805
  4. TRIAZOLAM [Concomitant]
     Indication: ANXIETY
     Dosage: ONE EVERY 24HRS
     Route: 048
     Dates: start: 20120805
  5. IRBESARTAN AND HYDROCHLOROTHIAZIDE [Concomitant]
     Indication: HYPERTENSION
     Dosage: ONE EVERY 24 HRS
     Route: 048
  6. DIAMICRON R [Concomitant]
     Indication: DIABETES MELLITUS
     Dosage: ONE EVERY 24HRS
     Route: 048

REACTIONS (2)
  - NORMAL PRESSURE HYDROCEPHALUS [None]
  - URETHRAL HAEMORRHAGE [None]
